FAERS Safety Report 14571690 (Version 3)
Quarter: 2021Q1

REPORT INFORMATION
  Report Type: Report from Study
  Country: CA (occurrence: CA)
  Receive Date: 20180226
  Receipt Date: 20210204
  Transmission Date: 20210419
  Serious: Yes (Death, Hospitalization)
  Sender: FDA-Public Use
  Company Number: CA-ROCHE-1954282

PATIENT
  Age: 69 Year
  Sex: Male
  Weight: 83.9 kg

DRUGS (6)
  1. BENDAMUSTINE [Suspect]
     Active Substance: BENDAMUSTINE
     Indication: DIFFUSE LARGE B-CELL LYMPHOMA
     Dosage: DATE OF MOST RECENT DOSE (185 MG) OF BENDAMUSTINE PRIOR TO AE ONSET: 17/SEP/2015 (START TIME:13 00)
     Route: 042
     Dates: start: 20150602
  2. OBINUTUZUMAB. [Suspect]
     Active Substance: OBINUTUZUMAB
     Indication: DIFFUSE LARGE B-CELL LYMPHOMA
     Dosage: DATE OF MOST RECENT DOSE OF OBINUTUZUMAB PRIOR TO AE ONSET: 16/SEP/2015 (START TIME:09 25)
     Route: 042
     Dates: start: 20150601
  3. GRAVOL [Concomitant]
     Active Substance: DIMENHYDRINATE
     Indication: NAUSEA
     Dates: start: 20141014
  4. POLATUZUMAB VEDOTIN. [Suspect]
     Active Substance: POLATUZUMAB VEDOTIN
     Indication: DIFFUSE LARGE B-CELL LYMPHOMA
     Dosage: DATE OF MOST RECENT DOSE (158 MG) OF POLATUZUMAB VEDOTIN PRIOR TO AE ONSET: 16/SEP/2015 (START TIME:
     Route: 042
     Dates: start: 20150602
  5. BISACODYL. [Concomitant]
     Active Substance: BISACODYL
     Indication: CONSTIPATION
     Dates: start: 20150520
  6. PREGABALIN. [Concomitant]
     Active Substance: PREGABALIN
     Indication: NEUROPATHY PERIPHERAL
     Dates: start: 20170528

REACTIONS (3)
  - Myelodysplastic syndrome [Fatal]
  - Febrile neutropenia [Recovered/Resolved]
  - Large intestine infection [Recovered/Resolved]

NARRATIVE: CASE EVENT DATE: 20170612
